FAERS Safety Report 10673578 (Version 3)
Quarter: 2020Q3

REPORT INFORMATION
  Report Type: Report from Study
  Country: GB (occurrence: GB)
  Receive Date: 20141224
  Receipt Date: 20200206
  Transmission Date: 20201104
  Serious: Yes (Hospitalization)
  Sender: FDA-Public Use
  Company Number: GB-ASTRAZENECA-2014SE84591

PATIENT
  Age: 38 Year
  Sex: Female
  Weight: 74 kg

DRUGS (3)
  1. CAPIVASERTIB. [Suspect]
     Active Substance: CAPIVASERTIB
     Indication: NEOPLASM MALIGNANT
     Dosage: 480 MG BD 4 DAYS ON AND 3 DAYS OFF.
     Route: 048
     Dates: start: 20141021, end: 20141031
  2. OLAPARIB. [Suspect]
     Active Substance: OLAPARIB
     Indication: NEOPLASM MALIGNANT
     Dosage: 300 MG
     Route: 048
     Dates: start: 20141021, end: 20141031
  3. CAPIVASERTIB. [Suspect]
     Active Substance: CAPIVASERTIB
     Indication: NEOPLASM MALIGNANT
     Dosage: 400 MG
     Route: 048
     Dates: start: 20141118

REACTIONS (1)
  - Rash maculo-papular [Recovered/Resolved]

NARRATIVE: CASE EVENT DATE: 20141102
